FAERS Safety Report 18898234 (Version 1)
Quarter: 2021Q1

REPORT INFORMATION
  Report Type: Spontaneous
  Country: US (occurrence: US)
  Receive Date: 20210215
  Receipt Date: 20210215
  Transmission Date: 20210420
  Serious: Yes (Hospitalization)
  Sender: FDA-Public Use
  Company Number: None

PATIENT
  Sex: Female

DRUGS (12)
  1. SIMVASTATIN. [Concomitant]
     Active Substance: SIMVASTATIN
  2. SPIRONOLACT [Concomitant]
     Active Substance: SPIRONOLACTONE
  3. TRIAMCINOLON CRE [Concomitant]
  4. ALENDRONATE [Concomitant]
     Active Substance: ALENDRONATE SODIUM
  5. FOLIC ACID. [Concomitant]
     Active Substance: FOLIC ACID
  6. TADALAFIL 20MG TAB [Suspect]
     Active Substance: TADALAFIL
     Indication: PULMONARY ARTERIAL HYPERTENSION
     Route: 048
     Dates: start: 20210120
  7. SMZ/TMP DS [Concomitant]
     Active Substance: SULFAMETHOXAZOLE\TRIMETHOPRIM
  8. LEVOTHYROXIN [Suspect]
     Active Substance: LEVOTHYROXINE
  9. PREGABALIN. [Concomitant]
     Active Substance: PREGABALIN
  10. CEPHALEXIN. [Concomitant]
     Active Substance: CEPHALEXIN
  11. ESTRADIOL CRE [Concomitant]
  12. AMBRISENTAN 10MG TAB [Suspect]
     Active Substance: AMBRISENTAN
     Indication: PULMONARY ARTERIAL HYPERTENSION
     Route: 048
     Dates: start: 20210203

REACTIONS (2)
  - Skin graft [None]
  - Wound [None]
